FAERS Safety Report 12378263 (Version 1)
Quarter: 2016Q2

REPORT INFORMATION
  Report Type: Spontaneous
  Country: US (occurrence: US)
  Receive Date: 20160517
  Receipt Date: 20160517
  Transmission Date: 20160815
  Serious: No
  Sender: FDA-Public Use
  Company Number: US-JNJFOC-20160410653

PATIENT
  Age: 92 Year
  Sex: Female
  Weight: 47.17 kg

DRUGS (2)
  1. TYLENOL 8 HR ARTHRITIS PAIN [Suspect]
     Active Substance: ACETAMINOPHEN
     Indication: RIB FRACTURE
     Dosage: 1 TABLET EVERY OTHER DAY
     Route: 061
     Dates: start: 20160406, end: 20160409
  2. TYLENOL 8 HR ARTHRITIS PAIN [Suspect]
     Active Substance: ACETAMINOPHEN
     Indication: HIP FRACTURE
     Dosage: 1 TABLET EVERY OTHER DAY
     Route: 061
     Dates: start: 20160406, end: 20160409

REACTIONS (4)
  - Product use issue [Unknown]
  - Wrong technique in product usage process [Unknown]
  - Off label use [Unknown]
  - Product difficult to swallow [Unknown]

NARRATIVE: CASE EVENT DATE: 20160406
